FAERS Safety Report 8989029 (Version 1)
Quarter: 2012Q4

REPORT INFORMATION
  Report Type: 
  Country: SI (occurrence: SI)
  Receive Date: 20121227
  Receipt Date: 20121227
  Transmission Date: 20130627
  Serious: Yes (Other)
  Sender: FDA-Public Use
  Company Number: SI-BAXTER-2012BAX029080

PATIENT
  Age: 61 Year
  Sex: Male

DRUGS (2)
  1. KIOVIG 100 MG/ML SOLUTION FOR INFUSION INTRAVENOUS USE VIAL (GLASS) 30 [Suspect]
     Indication: SJOGREN^S SYNDROME
  2. KIOVIG 100 MG/ML SOLUTION FOR INFUSION INTRAVENOUS USE VIAL (GLASS) 30 [Suspect]
     Indication: OFF LABEL USE

REACTIONS (1)
  - Treatment failure [Recovering/Resolving]
